APPROVED DRUG PRODUCT: UZEDY
Active Ingredient: RISPERIDONE
Strength: 150MG/0.42ML (150MG/0.42ML)
Dosage Form/Route: SUSPENSION, EXTENDED RELEASE;SUBCUTANEOUS
Application: N213586 | Product #005
Applicant: TEVA NEUROSCIENCE INC
Approved: Apr 28, 2023 | RLD: Yes | RS: Yes | Type: RX

PATENTS:
Patent 12329851 | Expires: Mar 17, 2042
Patent 12383493 | Expires: Sep 11, 2040
Patent 8221778 | Expires: Nov 12, 2027
Patent 8741327 | Expires: Nov 12, 2027
Patent 12128132 | Expires: Sep 11, 2040
Patent 9023897 | Expires: Apr 5, 2033

EXCLUSIVITY:
Code: NP | Date: Apr 28, 2026